FAERS Safety Report 15493190 (Version 1)
Quarter: 2018Q4

REPORT INFORMATION
  Report Type: Other
  Country: ES (occurrence: ES)
  Receive Date: 20181012
  Receipt Date: 20181012
  Transmission Date: 20190205
  Serious: Yes (Other)
  Sender: FDA-Public Use
  Company Number: ES-APOTEX-2018AP022255

PATIENT
  Age: 34 Year
  Sex: Male
  Weight: 90 kg

DRUGS (1)
  1. CELECOXIB APOTEX CAPSULAS DURAS EFG [Suspect]
     Active Substance: CELECOXIB
     Indication: SURGERY
     Dosage: 400 MG 2 TIMES A DAY EVERY 12 HOURS
     Route: 048
     Dates: start: 20180115, end: 20180215

REACTIONS (2)
  - Haemorrhoids [Not Recovered/Not Resolved]
  - Anorectal discomfort [Not Recovered/Not Resolved]

NARRATIVE: CASE EVENT DATE: 20180201
